FAERS Safety Report 6158128-4 (Version None)
Quarter: 2009Q2

REPORT INFORMATION
  Report Type: 
  Country: None (occurrence: None)
  Receive Date: 20090417
  Receipt Date: 20090409
  Transmission Date: 20091009
  Serious: Yes (Hospitalization)
  Sender: FDA-Public Use
  Company Number: JP-ROCHE-610281

PATIENT
  Age: 76 Year
  Sex: Female

DRUGS (1)
  1. CAPECITABINE [Suspect]
     Indication: COLON CANCER
     Route: 048
     Dates: start: 20090109, end: 20090112

REACTIONS (1)
  - EXTRAPYRAMIDAL DISORDER [None]
